FAERS Safety Report 9921806 (Version 2)
Quarter: 2014Q3

REPORT INFORMATION
  Report Type: Report from Study
  Country: JP (occurrence: JP)
  Receive Date: 20140225
  Receipt Date: 20140701
  Transmission Date: 20150326
  Serious: Yes (Hospitalization)
  Sender: FDA-Public Use
  Company Number: JP-PFIZER INC-2014049596

PATIENT
  Age: 60 Year
  Sex: Female
  Weight: 59.1 kg

DRUGS (18)
  1. WARFARIN [Concomitant]
     Active Substance: WARFARIN
     Dosage: 1.5 MG, 1X/DAY
     Route: 048
     Dates: start: 20101118, end: 20101201
  2. THYRADIN S [Concomitant]
     Active Substance: LEVOTHYROXINE SODIUM
     Indication: HYPERTHYROIDISM
     Dosage: 50 UG, 2X/DAY
     Route: 048
     Dates: start: 20101008
  3. RANITAC [Concomitant]
     Indication: PROPHYLAXIS AGAINST GASTROINTESTINAL ULCER
     Dosage: 150 MG, 1X/DAY
     Route: 048
     Dates: start: 20100311, end: 20130410
  4. PHOSBLOCK [Concomitant]
     Active Substance: FERRIC HYDROXIDE
     Indication: HYPERPHOSPHATAEMIA
  5. ELCITONIN [Concomitant]
     Active Substance: ELCATONIN
     Indication: RENAL FAILURE CHRONIC
     Dosage: 40 IU, WEEKLY
     Route: 042
  6. REGPARA [Concomitant]
     Active Substance: CINACALCET HYDROCHLORIDE
     Indication: HYPERPARATHYROIDISM SECONDARY
     Dosage: 25 MG, 1X/DAY
     Route: 048
  7. QVAR [Concomitant]
     Active Substance: BECLOMETHASONE DIPROPIONATE
     Indication: ASTHMA
     Dosage: 200 UG, 2X/DAY
     Route: 055
     Dates: start: 20110616, end: 20120711
  8. REVATIO [Suspect]
     Active Substance: SILDENAFIL CITRATE
     Dosage: 20 MG, 2X/DAY TAKEN ONLY ON THE DAYS OF DIALYSIS
     Route: 048
     Dates: start: 20120308
  9. WARFARIN [Concomitant]
     Active Substance: WARFARIN
     Dosage: 2 MG, 1X/DAY
     Route: 048
     Dates: start: 20101202, end: 20110207
  10. OXAROL [Concomitant]
     Active Substance: MAXACALCITOL
     Indication: HYPERPARATHYROIDISM SECONDARY
     Dosage: 2.5 UG, 3X/WEEK
     Route: 042
  11. WARFARIN [Concomitant]
     Active Substance: WARFARIN
     Dosage: 1 MG, 1X/DAY
     Route: 048
     Dates: start: 20110814
  12. HALFDIGOXIN KY [Concomitant]
     Indication: ATRIAL FIBRILLATION
     Dosage: 0.062 MG, 3X/DAY
     Route: 048
     Dates: start: 20101202, end: 20120416
  13. RISUMIC [Concomitant]
     Active Substance: AMEZINIUM METILSULFATE
     Indication: BLOOD PRESSURE
     Dosage: 10 MG, 3X/WEEK
     Route: 048
  14. WARFARIN [Concomitant]
     Active Substance: WARFARIN
     Dosage: 1.5 MG, 1X/DAY
     Route: 048
     Dates: start: 20110208, end: 20110813
  15. TRACLEER [Concomitant]
     Active Substance: BOSENTAN\BOSENTAN MONOHYDRATE
     Indication: PULMONARY HYPERTENSION
     Dosage: 12.5 MG, 2X/DAY
     Route: 048
     Dates: start: 20101021
  16. PHOSBLOCK [Concomitant]
     Active Substance: FERRIC HYDROXIDE
     Indication: RENAL FAILURE CHRONIC
     Dosage: 2000 MG, 3X/DAY
     Route: 048
  17. WARFARIN [Concomitant]
     Active Substance: WARFARIN
     Indication: THROMBOSIS PROPHYLAXIS
     Dosage: 1.25 MG, 1X/DAY
     Route: 048
     Dates: start: 20101030, end: 20101117
  18. REVATIO [Suspect]
     Active Substance: SILDENAFIL CITRATE
     Indication: PULMONARY ARTERIAL HYPERTENSION
     Dosage: 20 MG, 3X/DAY
     Route: 048
     Dates: start: 20111111, end: 20120307

REACTIONS (5)
  - Bradycardia [Recovering/Resolving]
  - Syncope [Recovering/Resolving]
  - Pneumonia bacterial [Recovered/Resolved]
  - Influenza [Recovered/Resolved]
  - Syncope [Recovering/Resolving]

NARRATIVE: CASE EVENT DATE: 20120210
